FAERS Safety Report 10661587 (Version 1)
Quarter: 2014Q4

REPORT INFORMATION
  Report Type: Spontaneous
  Country: US (occurrence: None)
  Receive Date: 20141217
  Receipt Date: 20141217
  Transmission Date: 20150529
  Serious: Yes (Other)
  Sender: FDA-Public Use
  Company Number: None

PATIENT
  Age: 78 Year
  Sex: Male

DRUGS (14)
  1. DRONABINOL. [Concomitant]
     Active Substance: DRONABINOL
  2. FAMOTIDINE. [Concomitant]
     Active Substance: FAMOTIDINE
  3. CARDIZEM CD [Concomitant]
     Active Substance: DILTIAZEM HYDROCHLORIDE
  4. ZYTIGA [Suspect]
     Active Substance: ABIRATERONE ACETATE
     Indication: PROSTATE CANCER
     Dosage: 4 TABLETS (1,000MG), ONCE DAILY, ORALLY
     Route: 048
     Dates: start: 20141016, end: 20141216
  5. DILTIAZEM [Concomitant]
     Active Substance: DILTIAZEM
  6. FOLIC ACID. [Concomitant]
     Active Substance: FOLIC ACID
  7. CALCIUM CARBONATE. [Concomitant]
     Active Substance: CALCIUM CARBONATE
  8. PREDNISONE. [Concomitant]
     Active Substance: PREDNISONE
  9. METOPROLOL TARTRATE. [Concomitant]
     Active Substance: METOPROLOL TARTRATE
  10. TOPROL XL [Concomitant]
     Active Substance: METOPROLOL SUCCINATE
  11. CLOTRIMAZOLE. [Concomitant]
     Active Substance: CLOTRIMAZOLE
  12. OXYCODONE/APAP [Concomitant]
     Active Substance: ACETAMINOPHEN\OXYCODONE HYDROCHLORIDE
  13. COLCRYS [Concomitant]
     Active Substance: COLCHICINE
  14. FENTANYL. [Concomitant]
     Active Substance: FENTANYL

REACTIONS (1)
  - Drug ineffective [None]

NARRATIVE: CASE EVENT DATE: 20141216
